FAERS Safety Report 10485314 (Version 1)
Quarter: 2014Q3

REPORT INFORMATION
  Report Type: Spontaneous
  Country: US (occurrence: US)
  Receive Date: 20140930
  Receipt Date: 20140930
  Transmission Date: 20150326
  Serious: No
  Sender: FDA-Public Use
  Company Number: US-TEVA-510442USA

PATIENT
  Sex: Female

DRUGS (2)
  1. ACTHAR [Suspect]
     Active Substance: CORTICOTROPIN
     Route: 065
  2. COPAXONE [Suspect]
     Active Substance: GLATIRAMER ACETATE
     Indication: MULTIPLE SCLEROSIS

REACTIONS (5)
  - Acne [Unknown]
  - Gait disturbance [Unknown]
  - Skin irritation [Unknown]
  - Asthenia [Unknown]
  - Wheelchair user [Unknown]
